FAERS Safety Report 5167659-5 (Version None)
Quarter: 2006Q4

REPORT INFORMATION
  Report Type: 
  Country: None (occurrence: None)
  Receive Date: 20061204
  Receipt Date: 20061204
  Transmission Date: 20070319
  Serious: Yes (Other)
  Sender: FDA-Public Use
  Company Number: None

PATIENT
  Age: 73 Year
  Sex: Male
  Weight: 88.4514 kg

DRUGS (2)
  1. FLUNISOLIDE NASAL SOLUTION 0.025% BAUSCH + LOMB [Suspect]
     Indication: HYPERSENSITIVITY
     Dosage: 2 SPRAYS DAILY NASAL
     Route: 045
     Dates: start: 20061004, end: 20061201
  2. FLUNISOLITE NASAL SOLUTION 0.025% BAUSCH + LOMB [Suspect]
     Indication: HYPERSENSITIVITY
     Dosage: 2 SPRAYS DAILY NASAL
     Route: 045
     Dates: start: 20061013, end: 20061209

REACTIONS (2)
  - MUCOUS MEMBRANE DISORDER [None]
  - PHARMACEUTICAL PRODUCT COMPLAINT [None]
